FAERS Safety Report 16883080 (Version 1)
Quarter: 2019Q4

REPORT INFORMATION
  Report Type: Spontaneous
  Country: US (occurrence: US)
  Receive Date: 20191004
  Receipt Date: 20191004
  Transmission Date: 20200122
  Serious: Yes (Death, Hospitalization, Other)
  Sender: FDA-Public Use
  Company Number: US-SA-2019SA273150

PATIENT
  Age: 74 Year
  Sex: Male
  Weight: 78 kg

DRUGS (20)
  1. ELOXATIN [Suspect]
     Active Substance: OXALIPLATIN
     Indication: PANCREATIC CARCINOMA METASTATIC
     Dosage: 165 MG, QCY
     Route: 042
     Dates: start: 20180906
  2. FLUOROURACIL. [Suspect]
     Active Substance: FLUOROURACIL
     Dosage: 4730 MG, QCY
     Route: 042
     Dates: start: 20180906
  3. FLUOROURACIL. [Suspect]
     Active Substance: FLUOROURACIL
     Dosage: 790 MG, QCY
     Route: 041
     Dates: start: 20181025
  4. DOCUSATE SODIUM;SENNOSIDE B [Concomitant]
     Active Substance: DOCUSATE SODIUM\SENNOSIDE B
     Dosage: UNK
  5. ESOMEPRAZOLE SODIUM. [Concomitant]
     Active Substance: ESOMEPRAZOLE SODIUM
     Dosage: UNK
     Dates: start: 20180812
  6. METOCLOPRAMIDE. [Concomitant]
     Active Substance: METOCLOPRAMIDE
     Dosage: UNK
     Dates: start: 20180130
  7. MELATONIN [Concomitant]
     Active Substance: MELATONIN
     Dosage: UNK
  8. ELOXATIN [Suspect]
     Active Substance: OXALIPLATIN
     Dosage: 165 MG, QCY
     Route: 042
     Dates: start: 20181102
  9. AMLODIPINE [Concomitant]
     Active Substance: AMLODIPINE BESYLATE
     Dosage: UNK
     Dates: start: 20180822
  10. IBUPROFEN. [Concomitant]
     Active Substance: IBUPROFEN
     Dosage: UNK
     Dates: start: 20180822
  11. TRAZODONE [Concomitant]
     Active Substance: TRAZODONE HYDROCHLORIDE
     Dosage: UNK
     Dates: start: 20180209
  12. FOLIC ACID. [Suspect]
     Active Substance: FOLIC ACID
     Indication: PANCREATIC CARCINOMA METASTATIC
     Dosage: 790 MG, QCY
     Route: 042
     Dates: start: 20180906
  13. ELOXATIN [Suspect]
     Active Substance: OXALIPLATIN
     Dosage: 165 MG, QCY
     Route: 042
     Dates: start: 20181025
  14. FLUOROURACIL. [Suspect]
     Active Substance: FLUOROURACIL
     Indication: PANCREATIC CARCINOMA METASTATIC
     Dosage: 0.4 MG, QCY
     Route: 058
     Dates: start: 20180906
  15. FLUOROURACIL. [Suspect]
     Active Substance: FLUOROURACIL
     Indication: PANCREATIC CARCINOMA METASTATIC
     Dosage: 790 MG, QCY
     Route: 041
     Dates: start: 20180906
  16. FLUOROURACIL. [Suspect]
     Active Substance: FLUOROURACIL
     Dosage: 790 MG, QCY
     Route: 041
     Dates: start: 20181102
  17. FOLIC ACID. [Suspect]
     Active Substance: FOLIC ACID
     Dosage: 790 MG, QCY
     Route: 042
     Dates: start: 20181025
  18. FOLIC ACID. [Suspect]
     Active Substance: FOLIC ACID
     Dosage: 790 MG, QCY
     Route: 042
     Dates: start: 20181102
  19. OXYCODONE [Concomitant]
     Active Substance: OXYCODONE
     Dosage: UNK
     Dates: start: 20180812
  20. ACETAMINOPHEN. [Concomitant]
     Active Substance: ACETAMINOPHEN
     Dosage: UNK
     Dates: start: 20180202

REACTIONS (3)
  - Death [Fatal]
  - Malignant urinary tract obstruction [Unknown]
  - Urinary tract obstruction [Recovered/Resolved]

NARRATIVE: CASE EVENT DATE: 20180913
